FAERS Safety Report 6464123-8 (Version None)
Quarter: 2009Q4

REPORT INFORMATION
  Report Type: 
  Country: None (occurrence: None)
  Receive Date: 20091201
  Receipt Date: 20091126
  Transmission Date: 20100525
  Serious: Yes (Death, Hospitalization, Other)
  Sender: FDA-Public Use
  Company Number: BR-ABBOTT-09P-020-0573888-00

PATIENT
  Sex: Female
  Weight: 38 kg

DRUGS (7)
  1. HUMIRA [Suspect]
     Indication: RHEUMATOID ARTHRITIS
     Route: 058
     Dates: start: 20090111, end: 20090301
  2. TYLEX [Concomitant]
     Indication: DRUG USE FOR UNKNOWN INDICATION
     Dates: end: 20090301
  3. ALENDRONATE [Concomitant]
     Indication: DRUG USE FOR UNKNOWN INDICATION
     Dates: end: 20090301
  4. METICORTEN [Concomitant]
     Indication: DRUG USE FOR UNKNOWN INDICATION
     Dates: end: 20090301
  5. PREDNISONE TAB [Concomitant]
     Indication: DRUG USE FOR UNKNOWN INDICATION
     Dates: end: 20090301
  6. METHOTREXATE [Concomitant]
     Indication: DRUG USE FOR UNKNOWN INDICATION
     Dates: end: 20090301
  7. ALENIA [Concomitant]
     Indication: LUNG DISORDER
     Route: 045

REACTIONS (8)
  - DERMATITIS [None]
  - DYSSTASIA [None]
  - GAIT DISTURBANCE [None]
  - HEADACHE [None]
  - LUNG NEOPLASM [None]
  - MOTOR DYSFUNCTION [None]
  - NEOPLASM MALIGNANT [None]
  - PAIN [None]
